FAERS Safety Report 7548387-5 (Version None)
Quarter: 2011Q2

REPORT INFORMATION
  Report Type: 
  Country: None (occurrence: None)
  Receive Date: 20110608
  Receipt Date: 20110526
  Transmission Date: 20111010
  Serious: Yes (Other)
  Sender: FDA-Public Use
  Company Number: 2011001540

PATIENT
  Age: 62 Year
  Sex: Male

DRUGS (9)
  1. FAMOTIDINE [Concomitant]
  2. MAGLAX (MAGNESIUM OXIDE) [Concomitant]
  3. APLACE (TROXIPIDE) [Concomitant]
  4. PREDNISOLONE [Concomitant]
  5. BISOPROLOL FUMARATE [Concomitant]
  6. ALLOPURINOL [Concomitant]
  7. LOPERAMIDE HCL [Concomitant]
  8. TARCEVA [Suspect]
     Indication: NON-SMALL CELL LUNG CANCER
     Dosage: 150 MG, UID/QD, ORAL
     Route: 048
     Dates: start: 20091204
  9. FERROUS CITRATE [Concomitant]

REACTIONS (7)
  - CONSTIPATION [None]
  - NEPHROPATHY TOXIC [None]
  - CONDITION AGGRAVATED [None]
  - HAEMATOCRIT DECREASED [None]
  - DIARRHOEA [None]
  - RENAL FAILURE [None]
  - PROTEINURIA [None]
